FAERS Safety Report 5023437-9 (Version None)
Quarter: 2006Q2

REPORT INFORMATION
  Report Type: 
  Country: None (occurrence: None)
  Receive Date: 20060427
  Receipt Date: 20060112
  Transmission Date: 20061013
  Serious: No
  Sender: FDA-Public Use
  Company Number: 2006-137391-NL

PATIENT
  Age: 67 Year
  Sex: Female
  Weight: 86.2 kg

DRUGS (10)
  1. ZEMURON [Suspect]
     Indication: HYPOTONIA
     Dosage: 20 MG ONCE INTRAVENOUS (NOS)
     Route: 042
     Dates: start: 20060112, end: 20060112
  2. ZEMURON [Suspect]
     Indication: HYPOTONIA
     Dosage: 30 MG ONCE INTRAVENOUS (NOS)
     Route: 042
     Dates: start: 20060112, end: 20060112
  3. ANECTINE [Suspect]
     Indication: INTUBATION
     Dosage: 60 MG ONCE INTRAVENOUS (NOS)
     Route: 042
     Dates: start: 20060112, end: 20060112
  4. PROPOFOL [Concomitant]
  5. DESFLURANE [Concomitant]
  6. FENTANYL [Concomitant]
  7. MORPHINE [Concomitant]
  8. DECADRON [Concomitant]
  9. NEOSTIGMINE [Concomitant]
  10. ROBINUL [Concomitant]

REACTIONS (1)
  - NEUROMUSCULAR BLOCK PROLONGED [None]
